FAERS Safety Report 6497207-9 (Version None)
Quarter: 2009Q4

REPORT INFORMATION
  Report Type: 
  Country: None (occurrence: None)
  Receive Date: 20091215
  Receipt Date: 20090606
  Transmission Date: 20100525
  Serious: No
  Sender: FDA-Public Use
  Company Number: A0790556A

PATIENT
  Sex: Male

DRUGS (1)
  1. AVODART [Suspect]
     Indication: DRUG USE FOR UNKNOWN INDICATION
     Dates: start: 20080101, end: 20090101

REACTIONS (1)
  - BREAST PAIN [None]
